FAERS Safety Report 20635223 (Version 1)
Quarter: 2022Q1

REPORT INFORMATION
  Report Type: Spontaneous
  Country: CO (occurrence: CO)
  Receive Date: 20220325
  Receipt Date: 20220325
  Transmission Date: 20220423
  Serious: Yes (Other)
  Sender: FDA-Public Use
  Company Number: CO-BAYER-2022A037655

PATIENT
  Sex: Female

DRUGS (1)
  1. LEVONORGESTREL [Suspect]
     Active Substance: LEVONORGESTREL
     Indication: Product used for unknown indication
     Route: 058
     Dates: start: 20211006

REACTIONS (9)
  - Syncope [Unknown]
  - Heavy menstrual bleeding [Unknown]
  - Headache [Unknown]
  - Dizziness [Unknown]
  - Pain in extremity [Unknown]
  - Vomiting [Unknown]
  - Chest pain [Unknown]
  - Dysmenorrhoea [Unknown]
  - Palpitations [Unknown]
